FAERS Safety Report 4808810-3 (Version None)
Quarter: 2005Q4

REPORT INFORMATION
  Report Type: 
  Country: None (occurrence: None)
  Receive Date: 20051025
  Receipt Date: 20051013
  Transmission Date: 20060501
  Serious: Yes (Other)
  Sender: FDA-Public Use
  Company Number: US-GLAXOSMITHKLINE-A0578103A

PATIENT
  Sex: Female

DRUGS (1)
  1. DEBROX DROPS [Suspect]
     Route: 001

REACTIONS (5)
  - CONDITION AGGRAVATED [None]
  - DEAFNESS [None]
  - EAR DISCOMFORT [None]
  - EAR PAIN [None]
  - SKIN IRRITATION [None]
